FAERS Safety Report 5013422-5 (Version None)
Quarter: 2006Q2

REPORT INFORMATION
  Report Type: 
  Country: None (occurrence: None)
  Receive Date: 20060530
  Receipt Date: 20060517
  Transmission Date: 20061013
  Serious: Yes (Life-Threatening, Hospitalization)
  Sender: FDA-Public Use
  Company Number: FR-BRISTOL-MYERS SQUIBB COMPANY-13380068

PATIENT
  Age: 43 Year
  Sex: Male

DRUGS (4)
  1. BUSPAR [Suspect]
     Route: 048
     Dates: start: 20060424, end: 20060424
  2. CELOCURINE [Suspect]
     Route: 042
     Dates: start: 20060424, end: 20060424
  3. SERESTA [Suspect]
     Route: 048
     Dates: start: 20060424, end: 20060424
  4. ETOMIDATE [Suspect]
     Indication: DEPRESSED LEVEL OF CONSCIOUSNESS
     Route: 042
     Dates: start: 20060424, end: 20060424

REACTIONS (2)
  - ANAPHYLACTIC SHOCK [None]
  - SUICIDE ATTEMPT [None]
